FAERS Safety Report 12137726 (Version 2)
Quarter: 2016Q1

REPORT INFORMATION
  Report Type: Spontaneous
  Country: TR (occurrence: TR)
  Receive Date: 20160302
  Receipt Date: 20160307
  Transmission Date: 20160526
  Serious: Yes (Death, Hospitalization, Other)
  Sender: FDA-Public Use
  Company Number: TR-009507513-1504TUR024351

PATIENT
  Age: 68 Year
  Sex: Male

DRUGS (2)
  1. DAPTOMYCIN. [Suspect]
     Active Substance: DAPTOMYCIN
     Indication: NECROTISING FASCIITIS
     Dosage: 4 MG/KG, QD
     Route: 042
  2. IMIPENEM [Suspect]
     Active Substance: IMIPENEM
     Indication: NECROTISING FASCIITIS
     Dosage: 500 MG, Q6H
     Route: 042

REACTIONS (5)
  - Drug resistance [Unknown]
  - General physical health deterioration [Fatal]
  - Multiple organ dysfunction syndrome [Fatal]
  - Sepsis [Unknown]
  - Pseudomonas infection [Fatal]
